FAERS Safety Report 23971797 (Version 1)
Quarter: 2024Q2

REPORT INFORMATION
  Report Type: Spontaneous
  Country: US (occurrence: US)
  Receive Date: 20240613
  Receipt Date: 20240613
  Transmission Date: 20240716
  Serious: Yes (Other)
  Sender: FDA-Public Use
  Company Number: US-DRL-USA-LIT/USA/24/0008432

PATIENT
  Age: 16 Year

DRUGS (2)
  1. DIFLUPREDNATE [Suspect]
     Active Substance: DIFLUPREDNATE
     Indication: Retinal degeneration
     Dosage: 3 WEEKS OF TOPICAL DIFLUPREDNATE
     Route: 061
  2. VALACYCLOVIR [Concomitant]
     Active Substance: VALACYCLOVIR HYDROCHLORIDE
     Indication: Cartilage atrophy
     Route: 048

REACTIONS (1)
  - Drug ineffective for unapproved indication [Unknown]
